FAERS Safety Report 8143807-X (Version None)
Quarter: 2012Q1

REPORT INFORMATION
  Report Type: 
  Country: None (occurrence: None)
  Receive Date: 20120217
  Receipt Date: 20120207
  Transmission Date: 20120608
  Serious: Yes (Other)
  Sender: FDA-Public Use
  Company Number: CA-JNJFOC-20120107917

PATIENT
  Sex: Female
  Weight: 52 kg

DRUGS (5)
  1. REMICADE [Suspect]
     Indication: CROHN'S DISEASE
     Route: 042
     Dates: start: 20111116
  2. REMICADE [Suspect]
     Route: 042
     Dates: start: 20120207
  3. REMICADE [Suspect]
     Route: 042
     Dates: start: 20120110, end: 20120110
  4. BENADRYL [Concomitant]
     Indication: PROPHYLAXIS
     Route: 048
  5. SOLU-CORTEF [Concomitant]
     Indication: PROPHYLAXIS
     Route: 042

REACTIONS (7)
  - GENERALISED ERYTHEMA [None]
  - COUGH [None]
  - INFUSION RELATED REACTION [None]
  - FLUSHING [None]
  - HOT FLUSH [None]
  - RESPIRATORY DISORDER [None]
  - SENSATION OF PRESSURE [None]
